FAERS Safety Report 7866486-5 (Version None)
Quarter: 2011Q4

REPORT INFORMATION
  Report Type: 
  Country: None (occurrence: None)
  Receive Date: 20111028
  Receipt Date: 20110624
  Transmission Date: 20120403
  Serious: No
  Sender: FDA-Public Use
  Company Number: US-GLAXOSMITHKLINE-A0932951A

PATIENT

DRUGS (4)
  1. COZAAR [Suspect]
  2. LOVASTATIN [Suspect]
  3. ADVAIR DISKUS 100/50 [Suspect]
     Route: 055
  4. WELCHOL [Suspect]

REACTIONS (2)
  - BLOOD PRESSURE INCREASED [None]
  - DRUG INTERACTION [None]
